FAERS Safety Report 20232488 (Version 1)
Quarter: 2021Q4

REPORT INFORMATION
  Report Type: Spontaneous
  Country: AU (occurrence: AU)
  Receive Date: 20211227
  Receipt Date: 20211227
  Transmission Date: 20220303
  Serious: Yes (Other)
  Sender: FDA-Public Use
  Company Number: AU-ALLERGAN-2144031US

PATIENT
  Sex: Male

DRUGS (1)
  1. SILODOSIN [Suspect]
     Active Substance: SILODOSIN
     Indication: Product used for unknown indication

REACTIONS (2)
  - Libido decreased [Recovered/Resolved]
  - Erectile dysfunction [Recovered/Resolved]
